FAERS Safety Report 8794988 (Version 1)
Quarter: 2012Q4

REPORT INFORMATION
  Report Type: 
  Country: US (occurrence: US)
  Receive Date: 20120917
  Receipt Date: 20120917
  Transmission Date: 20130627
  Serious: No
  Sender: FDA-Public Use
  Company Number: US-ASTRAZENECA-2012SE65567

PATIENT
  Age: 46 Year
  Sex: Female

DRUGS (2)
  1. SYMBICORT [Suspect]
     Indication: WHEEZING
     Dosage: 160/4.5 2 PUFFS
     Route: 055
     Dates: start: 2012, end: 2012
  2. ALBUTEROL [Concomitant]

REACTIONS (4)
  - Malaise [Unknown]
  - Aphagia [Unknown]
  - Nausea [Unknown]
  - Off label use [Unknown]
